FAERS Safety Report 5509475-8 (Version None)
Quarter: 2007Q4

REPORT INFORMATION
  Report Type: 
  Country: None (occurrence: None)
  Receive Date: 20071107
  Receipt Date: 20071026
  Transmission Date: 20080405
  Serious: Yes (Other)
  Sender: FDA-Public Use
  Company Number: GB-PFIZER INC-2007078816

PATIENT
  Age: 68 Year
  Sex: Female

DRUGS (1)
  1. CHAMPIX [Suspect]
     Route: 048
     Dates: start: 20070116, end: 20070330

REACTIONS (1)
  - HAEMORRHOIDS [None]
